FAERS Safety Report 23082936 (Version 3)
Quarter: 2024Q2

REPORT INFORMATION
  Report Type: Spontaneous
  Country: US (occurrence: US)
  Receive Date: 20231019
  Receipt Date: 20240501
  Transmission Date: 20240716
  Serious: No
  Sender: FDA-Public Use
  Company Number: US-UNITED THERAPEUTICS-UNT-2022-006727

PATIENT
  Sex: Female

DRUGS (5)
  1. REMODULIN [Suspect]
     Active Substance: TREPROSTINIL
     Indication: Pulmonary arterial hypertension
     Dosage: 0.024 ?G/KG, CONTINUING (39ML/24HR PUMP RATE USING 7ML REMODULIN EVERY 48 HRS)
     Route: 041
     Dates: start: 202203
  2. REMODULIN [Suspect]
     Active Substance: TREPROSTINIL
     Dosage: 0.054 ?G/KG (46ML/24HR), CONTINUING
     Route: 041
  3. REMODULIN [Suspect]
     Active Substance: TREPROSTINIL
     Dosage: UNK, CONTINUING
     Route: 041
     Dates: start: 202203
  4. REMODULIN [Suspect]
     Active Substance: TREPROSTINIL
     Indication: Pulmonary arterial hypertension
     Dosage: 0.038 ?G/KG, CONTINUING
     Route: 041
     Dates: start: 2022
  5. REMODULIN [Suspect]
     Active Substance: TREPROSTINIL
     Dosage: UNK, CONTINUING
     Route: 041
     Dates: start: 202203

REACTIONS (9)
  - Diarrhoea [Not Recovered/Not Resolved]
  - Headache [Not Recovered/Not Resolved]
  - Hot flush [Unknown]
  - Arthralgia [Unknown]
  - Back pain [Unknown]
  - Myalgia [Not Recovered/Not Resolved]
  - Oedema peripheral [Unknown]
  - Pollakiuria [Unknown]
  - Non-pitting oedema [Unknown]

NARRATIVE: CASE EVENT DATE: 20220101
